FAERS Safety Report 6666734-3 (Version None)
Quarter: 2010Q2

REPORT INFORMATION
  Report Type: 
  Country: None (occurrence: None)
  Receive Date: 20100401
  Receipt Date: 20100401
  Transmission Date: 20101027
  Serious: Yes (Other)
  Sender: FDA-Public Use
  Company Number: None

PATIENT
  Age: 54 Year
  Sex: Female
  Weight: 68.0396 kg

DRUGS (2)
  1. DURAGESIC 50 MCG PRICARA (ORTHO) [Suspect]
     Indication: PAIN
     Dosage: 50 MCG Q72 H TOP
     Route: 061
     Dates: start: 20100201
  2. DURAGESIC 50 MCG ORTHO [Suspect]
     Dosage: 50 MCG Q72H TOP
     Route: 061
     Dates: start: 20100301

REACTIONS (5)
  - DEVICE INEFFECTIVE [None]
  - DEVICE MALFUNCTION [None]
  - INCORRECT DOSE ADMINISTERED [None]
  - INSOMNIA [None]
  - PALPITATIONS [None]
